FAERS Safety Report 5477387-4 (Version None)
Quarter: 2007Q4

REPORT INFORMATION
  Report Type: 
  Country: None (occurrence: None)
  Receive Date: 20071001
  Receipt Date: 20070921
  Transmission Date: 20080405
  Serious: Yes (Other)
  Sender: FDA-Public Use
  Company Number: 2007SP018868

PATIENT
  Sex: Male

DRUGS (1)
  1. NOXAFIL (POSACONZOLE) [Suspect]
     Indication: PROPHYLAXIS
     Dosage: 10 ML;BID;PO
     Route: 048

REACTIONS (2)
  - ACUTE MYELOID LEUKAEMIA [None]
  - LEUKAEMIA RECURRENT [None]
